FAERS Safety Report 8711339 (Version 1)
Quarter: 2012Q4

REPORT INFORMATION
  Report Type: 
  Country: US (occurrence: US)
  Receive Date: 20120829
  Receipt Date: 20120829
  Transmission Date: 20130627
  Serious: Yes (Hospitalization, Other)
  Sender: FDA-Public Use
  Company Number: US-ROCHE-1094934

PATIENT
  Sex: Female

DRUGS (6)
  1. XOLAIR [Suspect]
     Indication: ASTHMA
  2. PREDNISONE [Concomitant]
     Dosage: 6 times
  3. ADVAIR [Concomitant]
     Dosage: 500/50
  4. SPIRIVA [Concomitant]
  5. ALBUTEROL [Concomitant]
  6. SINGULAIR [Concomitant]

REACTIONS (3)
  - Rash [Unknown]
  - Infection [Unknown]
  - Insomnia [Unknown]
